FAERS Safety Report 4508780-1 (Version None)
Quarter: 2004Q4

REPORT INFORMATION
  Report Type: 
  Country: None (occurrence: None)
  Receive Date: 20041122
  Receipt Date: 20041122
  Transmission Date: 20050328
  Serious: Yes (Other)
  Sender: FDA-Public Use
  Company Number: None

PATIENT
  Sex: Female
  Weight: 63.5036 kg

DRUGS (2)
  1. METFORMIN 500 MG [Suspect]
     Indication: DIABETES MELLITUS
     Dosage: TWICE DAILY/PO
     Route: 048
     Dates: start: 20031201
  2. DIGITEX 250 MCG [Suspect]
     Indication: CARDIAC DISORDER
     Dosage: ONCE DAILY /PO
     Route: 048
     Dates: start: 20031201

REACTIONS (3)
  - PALPITATIONS [None]
  - PRURITUS [None]
  - SKIN BURNING SENSATION [None]
